FAERS Safety Report 22654648 (Version 1)
Quarter: 2023Q2

REPORT INFORMATION
  Report Type: Spontaneous
  Country: US (occurrence: None)
  Receive Date: 20230628
  Receipt Date: 20230628
  Transmission Date: 20230722
  Serious: No
  Sender: FDA-Public Use
  Company Number: None

PATIENT
  Sex: 0

DRUGS (1)
  1. CYCLOSPORINE [Suspect]
     Active Substance: CYCLOSPORINE

REACTIONS (5)
  - Drug hypersensitivity [None]
  - Glaucoma [None]
  - Erythema [None]
  - Pruritus [None]
  - Swelling [None]
